FAERS Safety Report 13461415 (Version 1)
Quarter: 2017Q2

REPORT INFORMATION
  Report Type: Spontaneous
  Country: US (occurrence: US)
  Receive Date: 20170420
  Receipt Date: 20170420
  Transmission Date: 20170830
  Serious: No
  Sender: FDA-Public Use
  Company Number: US-JNJFOC-20170414775

PATIENT
  Sex: Female

DRUGS (1)
  1. TYLENOL REGULAR STRENGTH [Suspect]
     Active Substance: ACETAMINOPHEN
     Indication: PAIN
     Dosage: HALF TABLET
     Route: 048
     Dates: start: 20170410

REACTIONS (1)
  - Wrong technique in product usage process [Unknown]

NARRATIVE: CASE EVENT DATE: 20170410
